FAERS Safety Report 24562815 (Version 4)
Quarter: 2024Q4

REPORT INFORMATION
  Report Type: Spontaneous
  Country: SE (occurrence: SE)
  Receive Date: 20241029
  Receipt Date: 20241216
  Transmission Date: 20250115
  Serious: Yes (Other)
  Sender: BAUSCH AND LOMB
  Company Number: SE-AMGEN-SWESP2024200812

PATIENT
  Age: 80 Year
  Sex: Female

DRUGS (16)
  1. DEXAMETHASONE [Suspect]
     Active Substance: DEXAMETHASONE
     Indication: Plasma cell myeloma
     Route: 065
     Dates: start: 202403
  2. KYPROLIS [Suspect]
     Active Substance: CARFILZOMIB
     Indication: Plasma cell myeloma
     Dosage: 20 MILLIGRAM/SQ. METER 40 MG 60 MG KYPROLIS
     Route: 065
     Dates: start: 202403
  3. KYPROLIS [Suspect]
     Active Substance: CARFILZOMIB
     Dosage: 70 MILLIGRAM/SQ. METER, QWK (ONCE/WEEK FOR THREE WEEKS IN EACH TREATMENT)140 MG, 60 MG KYPROLIS
     Route: 065
     Dates: start: 2024
  4. KYPROLIS [Suspect]
     Active Substance: CARFILZOMIB
     Dosage: UNK 10 MG KYPROLIS
     Route: 065
     Dates: start: 2024
  5. KYPROLIS [Suspect]
     Active Substance: CARFILZOMIB
     Dosage: UNK 10 MG KYPROLIS
     Route: 065
     Dates: start: 2024
  6. KYPROLIS [Suspect]
     Active Substance: CARFILZOMIB
     Dosage: 40 MILLIGRAM, QWK QWK (ONCE/WEEK FOR THREE WEEKS IN EACH TREAMTENT) (40 MG OR 20 MG/SQ.M))
     Route: 065
     Dates: start: 2024
  7. KYPROLIS [Suspect]
     Active Substance: CARFILZOMIB
     Dosage: 140 MILLIGRAM, QWK QWK (ONCE/WEEK FOR THREE WEEKS IN EACH TREAMTENT) (140 MG I.E. 70 MG/SQ.M.)
     Route: 065
     Dates: start: 2024
  8. CYCLOPHOSPHAMIDE [Suspect]
     Active Substance: CYCLOPHOSPHAMIDE
     Indication: Plasma cell myeloma
     Route: 065
     Dates: start: 202403
  9. SULFAMETHOXAZOLE\TRIMETHOPRIM [Concomitant]
     Active Substance: SULFAMETHOXAZOLE\TRIMETHOPRIM
     Indication: Antifungal prophylaxis
     Dosage: UNK UNK, BID 1 X 2 ON MONDAYS AND THURSDAYS
     Route: 065
  10. OMEPRAZOLE [Concomitant]
     Active Substance: OMEPRAZOLE
     Indication: Gastrooesophageal reflux disease
     Dosage: 20 MILLIGRAM, AS NECESSARY
  11. ONDANSETRON [Concomitant]
     Active Substance: ONDANSETRON
     Indication: Nausea
     Dosage: 4 MILLIGRAM, AS NECESSARY 1 AS NEEDED FOR NAUSEA
  12. ZOPICLONE [Concomitant]
     Active Substance: ZOPICLONE
     Indication: Sleep disorder
     Dosage: UNK UNK, AS NECESSARY 1 IF NECESSARY
     Route: 065
  13. LOSARTAN [Concomitant]
     Active Substance: LOSARTAN
     Indication: Hypotension
     Dosage: 12.5 MILLIGRAM (12.5 MG X1)
     Dates: start: 202403
  14. POTASSIUM [Concomitant]
     Active Substance: POTASSIUM
     Indication: Product used for unknown indication
     Route: 065
  15. GABAPENTIN [Concomitant]
     Active Substance: GABAPENTIN
     Indication: Neuralgia
     Dosage: 100 MILLIGRAM (2+0+1+0) AND 300 MG 1+2+1+0
     Dates: start: 202401
  16. ACYCLOVIR [Concomitant]
     Active Substance: ACYCLOVIR
     Indication: Herpes zoster
     Dosage: 400 MILLIGRAM (400 MG 1 X 2)
     Dates: start: 202405

REACTIONS (2)
  - Haemolysis [Recovered/Resolved]
  - Off label use [Unknown]

NARRATIVE: CASE EVENT DATE: 20240101
